FAERS Safety Report 8066482-1 (Version None)
Quarter: 2012Q1

REPORT INFORMATION
  Report Type: 
  Country: None (occurrence: None)
  Receive Date: 20120124
  Receipt Date: 20120119
  Transmission Date: 20120608
  Serious: Yes (Other)
  Sender: FDA-Public Use
  Company Number: US-PFIZER INC-2011215327

PATIENT
  Sex: Male

DRUGS (3)
  1. ZYRTEC [Concomitant]
     Indication: HYPERSENSITIVITY
     Dosage: UNK
     Dates: start: 20010101
  2. BACTRIUM DS [Concomitant]
     Indication: ANTIBIOTIC THERAPY
     Dosage: UNK
     Dates: start: 20070101, end: 20100101
  3. CHANTIX [Suspect]
     Indication: SMOKING CESSATION THERAPY
     Dosage: UNK
     Dates: start: 20080901, end: 20081001

REACTIONS (7)
  - AGGRESSION [None]
  - AGITATION [None]
  - MOOD SWINGS [None]
  - DEPRESSION [None]
  - ANXIETY [None]
  - INSOMNIA [None]
  - IRRITABILITY [None]
